FAERS Safety Report 23958615 (Version 3)
Quarter: 2025Q1

REPORT INFORMATION
  Report Type: Report from Study
  Country: US (occurrence: US)
  Receive Date: 20240610
  Receipt Date: 20250117
  Transmission Date: 20250408
  Serious: Yes (Disabling, Other)
  Sender: GLAXOSMITHKLINE
  Company Number: US-GLAXOSMITHKLINE-US2024068721

PATIENT

DRUGS (1)
  1. BELIMUMAB [Suspect]
     Active Substance: BELIMUMAB
     Indication: Product used for unknown indication
     Dosage: 200 MG, WE
     Dates: start: 20240527

REACTIONS (4)
  - Disability [Unknown]
  - Diarrhoea [Unknown]
  - Constipation [Unknown]
  - Abdominal discomfort [Unknown]
